FAERS Safety Report 18925647 (Version 2)
Quarter: 2021Q1

REPORT INFORMATION
  Report Type: Report from Study
  Country: CO (occurrence: CO)
  Receive Date: 20210222
  Receipt Date: 20210322
  Transmission Date: 20210420
  Serious: Yes (Other)
  Sender: FDA-Public Use
  Company Number: CO-JNJFOC-20200153323

PATIENT
  Age: 35 Year
  Sex: Male
  Weight: 111 kg

DRUGS (3)
  1. INVEGA SUSTENNA [Suspect]
     Active Substance: PALIPERIDONE PALMITATE
     Indication: SCHIZOPHRENIA
     Route: 030
     Dates: start: 20191023
  2. INVEGA SUSTENNA [Suspect]
     Active Substance: PALIPERIDONE PALMITATE
  3. INVEGA SUSTENNA [Suspect]
     Active Substance: PALIPERIDONE PALMITATE
     Route: 030

REACTIONS (9)
  - Malaise [Recovered/Resolved]
  - Eating disorder [Recovered/Resolved]
  - Sexual dysfunction [Recovered/Resolved]
  - Inappropriate schedule of product administration [Unknown]
  - Overweight [Recovered/Resolved]
  - Hypersomnia [Recovered/Resolved]
  - Panic reaction [Recovered/Resolved]
  - Off label use [Unknown]
  - Inappropriate schedule of product administration [Unknown]

NARRATIVE: CASE EVENT DATE: 2019
